FAERS Safety Report 17173734 (Version 1)
Quarter: 2019Q4

REPORT INFORMATION
  Report Type: Report from Study
  Country: CN (occurrence: CN)
  Receive Date: 20191219
  Receipt Date: 20191219
  Transmission Date: 20200122
  Serious: Yes (Death)
  Sender: FDA-Public Use
  Company Number: CN-GUERBET-CN-20190194

PATIENT

DRUGS (5)
  1. ADRIAMYCIN [Suspect]
     Active Substance: DOXORUBICIN HYDROCHLORIDE
     Indication: TRANSCATHETER ARTERIAL CHEMOEMBOLISATION
     Dosage: 20-60MG
     Route: 013
  2. GELATIN SPONGE PARTICLES [Concomitant]
     Active Substance: DEVICE\GELATIN
     Indication: TRANSCATHETER ARTERIAL CHEMOEMBOLISATION
     Dosage: 300-700 UM
     Route: 013
  3. MORPHINE [Concomitant]
     Active Substance: MORPHINE
     Indication: ANALGESIC THERAPY
     Route: 065
  4. LIPIODOL ULTRA-FLUIDE [Suspect]
     Active Substance: ETHIODIZED OIL
     Indication: TRANSCATHETER ARTERIAL CHEMOEMBOLISATION
     Dosage: 2-20 ML
     Route: 013
  5. LIDOCAINE. [Concomitant]
     Active Substance: LIDOCAINE
     Indication: ANAESTHESIA
     Dosage: 5-10 ML
     Route: 065

REACTIONS (3)
  - Acute hepatic failure [Fatal]
  - Acute kidney injury [Fatal]
  - Product use in unapproved indication [Fatal]
